FAERS Safety Report 7651140-5 (Version None)
Quarter: 2011Q3

REPORT INFORMATION
  Report Type: 
  Country: None (occurrence: None)
  Receive Date: 20110802
  Receipt Date: 20110722
  Transmission Date: 20111222
  Serious: Yes (Hospitalization)
  Sender: FDA-Public Use
  Company Number: US-ACTELION-A-NJ2010-39386

PATIENT

DRUGS (3)
  1. TRACLEER [Suspect]
     Indication: PULMONARY ARTERIAL HYPERTENSION
     Dosage: UNK
     Route: 048
     Dates: start: 20090914
  2. OXYGEN [Concomitant]
  3. REVATIO [Concomitant]

REACTIONS (3)
  - DEVICE RELATED INFECTION [None]
  - SEPSIS [None]
  - URINARY TRACT INFECTION [None]
